FAERS Safety Report 15951265 (Version 1)
Quarter: 2019Q1

REPORT INFORMATION
  Report Type: Spontaneous
  Country: US (occurrence: US)
  Receive Date: 20190212
  Receipt Date: 20190212
  Transmission Date: 20190417
  Serious: No
  Sender: FDA-Public Use
  Company Number: US-ANIPHARMA-2018-US-015323

PATIENT
  Sex: Female

DRUGS (4)
  1. PHENERGAN [Suspect]
     Active Substance: PROMETHAZINE HYDROCHLORIDE
  2. COMPAZINE [Suspect]
     Active Substance: PROCHLORPERAZINE MALEATE
  3. REXULTI [Suspect]
     Active Substance: BREXPIPRAZOLE
  4. REGLAN [Suspect]
     Active Substance: METOCLOPRAMIDE HYDROCHLORIDE
     Indication: PRODUCT USED FOR UNKNOWN INDICATION

REACTIONS (1)
  - Restlessness [Unknown]
